FAERS Safety Report 21477381 (Version 1)
Quarter: 2022Q4

REPORT INFORMATION
  Report Type: Spontaneous
  Country: US (occurrence: US)
  Receive Date: 20221019
  Receipt Date: 20221019
  Transmission Date: 20230112
  Serious: No
  Sender: FDA-Public Use
  Company Number: US-ABBVIE-4133709

PATIENT
  Sex: Female

DRUGS (1)
  1. VENCLEXTA [Suspect]
     Active Substance: VENETOCLAX
     Indication: Amyloidosis
     Dosage: 100 MG ,TAKE 4 TABLET(S) BY MOUTH EVERY DAY (SWALLOW WHOLE. DO NOT CRUSH, CHEW, OR BREAK)
     Route: 048

REACTIONS (2)
  - Illness [Unknown]
  - Off label use [Unknown]
